FAERS Safety Report 14361276 (Version 1)
Quarter: 2018Q1

REPORT INFORMATION
  Report Type: Report from Study
  Country: US (occurrence: US)
  Receive Date: 20180108
  Receipt Date: 20180108
  Transmission Date: 20180509
  Serious: Yes (Hospitalization)
  Sender: FDA-Public Use
  Company Number: PHEH2017US042432

PATIENT
  Age: 37 Year
  Sex: Female

DRUGS (1)
  1. ILARIS [Suspect]
     Active Substance: CANAKINUMAB
     Indication: MUCKLE-WELLS SYNDROME
     Dosage: 150 MG, EVERY 8 WEEKS
     Route: 058

REACTIONS (5)
  - Feeling abnormal [Unknown]
  - White blood cell count decreased [Recovering/Resolving]
  - Influenza [Unknown]
  - Platelet count decreased [Unknown]
  - Head discomfort [Unknown]

NARRATIVE: CASE EVENT DATE: 201712
